FAERS Safety Report 12239128 (Version 1)
Quarter: 2016Q2

REPORT INFORMATION
  Report Type: Spontaneous
  Country: US (occurrence: US)
  Receive Date: 20160405
  Receipt Date: 20160405
  Transmission Date: 20160815
  Serious: No
  Sender: FDA-Public Use
  Company Number: ALCN2016US002073

PATIENT
  Age: 78 Year
  Sex: Female
  Weight: 61.68 kg

DRUGS (1)
  1. PREDNISOLONE ACETATE. [Suspect]
     Active Substance: PREDNISOLONE ACETATE
     Indication: POSTOPERATIVE CARE
     Dosage: 1 GTT, QID
     Route: 047
     Dates: start: 20160219, end: 20160314

REACTIONS (2)
  - Product physical consistency issue [Recovered/Resolved]
  - Medication residue present [Recovered/Resolved]

NARRATIVE: CASE EVENT DATE: 20160219
